FAERS Safety Report 5966260-0 (Version None)
Quarter: 2008Q4

REPORT INFORMATION
  Report Type: 
  Country: None (occurrence: None)
  Receive Date: 20081125
  Receipt Date: 20081117
  Transmission Date: 20090506
  Serious: Yes (Life-Threatening)
  Sender: FDA-Public Use
  Company Number: GB-TEVA-180771ISR

PATIENT
  Age: 55 Year
  Sex: Male

DRUGS (1)
  1. BACLOFEN [Suspect]
     Indication: MUSCLE SPASTICITY
     Route: 048
     Dates: start: 20080703, end: 20081001

REACTIONS (2)
  - HAEMOGLOBIN DECREASED [None]
  - MELAENA [None]
